FAERS Safety Report 13026382 (Version 4)
Quarter: 2017Q2

REPORT INFORMATION
  Report Type: Spontaneous
  Country: US (occurrence: US)
  Receive Date: 20161214
  Receipt Date: 20170531
  Transmission Date: 20170830
  Serious: No
  Sender: FDA-Public Use
  Company Number: US-TEVA-720167ACC

PATIENT
  Age: 45 Year
  Sex: Male

DRUGS (3)
  1. LIPITOR [Concomitant]
     Active Substance: ATORVASTATIN CALCIUM
  2. COPAXONE [Suspect]
     Active Substance: GLATIRAMER ACETATE
     Indication: MULTIPLE SCLEROSIS
     Dosage: PRE FILLED SYRINGE
     Route: 058
     Dates: start: 20150714
  3. COPAXONE [Suspect]
     Active Substance: GLATIRAMER ACETATE
     Dosage: PRE FILLED SYRINGE
     Route: 058
     Dates: start: 20151106

REACTIONS (5)
  - Muscular weakness [Not Recovered/Not Resolved]
  - Depression [Unknown]
  - Drug dose omission [Unknown]
  - Visual impairment [Not Recovered/Not Resolved]
  - Vision blurred [Unknown]

NARRATIVE: CASE EVENT DATE: 201605
